FAERS Safety Report 13243128 (Version 1)
Quarter: 2017Q1

REPORT INFORMATION
  Report Type: Spontaneous
  Country: US (occurrence: US)
  Receive Date: 20170216
  Receipt Date: 20170216
  Transmission Date: 20170428
  Serious: No
  Sender: FDA-Public Use
  Company Number: None

PATIENT
  Age: 24 Year
  Sex: Female
  Weight: 90.72 kg

DRUGS (1)
  1. PARAGARD T 380A [Suspect]
     Active Substance: COPPER
     Dates: start: 20150531

REACTIONS (6)
  - Menstruation irregular [None]
  - Muscle spasms [None]
  - Weight increased [None]
  - Device dislocation [None]
  - Vaginal haemorrhage [None]
  - Dysmenorrhoea [None]

NARRATIVE: CASE EVENT DATE: 20170106
